FAERS Safety Report 10347833 (Version 3)
Quarter: 2015Q2

REPORT INFORMATION
  Report Type: Report from Study
  Country: BR (occurrence: BR)
  Receive Date: 20140729
  Receipt Date: 20150421
  Transmission Date: 20150821
  Serious: Yes (Hospitalization, Disabling, Other)
  Sender: FDA-Public Use
  Company Number: BR-ABBVIE-14P-020-1186041-00

PATIENT
  Age: 65 Year
  Sex: Female
  Weight: 72 kg

DRUGS (4)
  1. HUMIRA [Suspect]
     Active Substance: ADALIMUMAB
     Indication: RHEUMATOID ARTHRITIS
     Route: 058
     Dates: start: 201212
  2. PURAN [Concomitant]
     Active Substance: LEVOTHYROXINE SODIUM
     Indication: HYPOTHYROIDISM
     Route: 048
  3. PYRAZINAMIDE. [Suspect]
     Active Substance: PYRAZINAMIDE
     Indication: TUBERCULOSIS
     Route: 065
     Dates: start: 201311, end: 201402
  4. PREDNISOLONE. [Concomitant]
     Active Substance: PREDNISOLONE
     Indication: PRODUCT USED FOR UNKNOWN INDICATION
     Dates: start: 2012

REACTIONS (18)
  - Lung disorder [Recovering/Resolving]
  - Abscess [Recovering/Resolving]
  - Mycobacterium abscessus infection [Recovered/Resolved]
  - Eyelid infection [Recovering/Resolving]
  - Infarction [Recovering/Resolving]
  - Weight decreased [Not Recovered/Not Resolved]
  - Candida infection [Recovering/Resolving]
  - Sepsis [Recovering/Resolving]
  - Immunosuppression [Recovering/Resolving]
  - Hepatotoxicity [Recovered/Resolved]
  - Hepatic enzyme increased [Recovering/Resolving]
  - Synovial cyst [Recovering/Resolving]
  - Pancreatic mass [Not Recovered/Not Resolved]
  - Hepatic mass [Not Recovered/Not Resolved]
  - Haematoma [Recovering/Resolving]
  - Abasia [Recovering/Resolving]
  - Lymph node tuberculosis [Recovering/Resolving]
  - Malaise [Recovering/Resolving]

NARRATIVE: CASE EVENT DATE: 201302
